FAERS Safety Report 21726732 (Version 1)
Quarter: 2022Q4

REPORT INFORMATION
  Report Type: Report from Study
  Country: FR (occurrence: FR)
  Receive Date: 20221214
  Receipt Date: 20221214
  Transmission Date: 20230112
  Serious: Yes (Life-Threatening, Hospitalization)
  Sender: FDA-Public Use
  Company Number: FR-BRISTOL-MYERS SQUIBB COMPANY-2022-106434

PATIENT
  Age: 73 Year
  Sex: Female
  Weight: 59 kg

DRUGS (5)
  1. PLACEBO [Suspect]
     Active Substance: UNSPECIFIED INGREDIENT
     Indication: Renal cell carcinoma
     Route: 042
     Dates: start: 20211115, end: 20220208
  2. CHOLECALCIFEROL [Concomitant]
     Active Substance: CHOLECALCIFEROL
     Indication: Product used for unknown indication
     Dosage: ONGOING
     Route: 048
  3. ADROVANCE [Concomitant]
     Active Substance: ALENDRONATE SODIUM\CHOLECALCIFEROL
     Indication: Product used for unknown indication
     Dosage: ONGOING
     Route: 048
  4. D STRESS [Concomitant]
     Indication: Product used for unknown indication
     Dosage: ONGOING
     Route: 048
  5. COVID-19 VACCINE [Concomitant]
     Indication: Product used for unknown indication
     Route: 058
     Dates: start: 20211025

REACTIONS (1)
  - Oedema [Not Recovered/Not Resolved]

NARRATIVE: CASE EVENT DATE: 20220912
